FAERS Safety Report 10267436 (Version 2)
Quarter: 2014Q3

REPORT INFORMATION
  Report Type: Spontaneous
  Country: US (occurrence: US)
  Receive Date: 20140630
  Receipt Date: 20140925
  Transmission Date: 20150326
  Serious: No
  Sender: FDA-Public Use
  Company Number: US-TEVA-490990USA

PATIENT
  Age: 25 Year
  Sex: Female
  Weight: 79.9 kg

DRUGS (1)
  1. PARAGARD T380A [Suspect]
     Active Substance: COPPER
     Indication: CONTRACEPTION
     Route: 015
     Dates: start: 20140210, end: 20140623

REACTIONS (2)
  - Vaginal haemorrhage [Unknown]
  - Dyspareunia [Unknown]

NARRATIVE: CASE EVENT DATE: 201403
